FAERS Safety Report 7547302-8 (Version None)
Quarter: 2011Q2

REPORT INFORMATION
  Report Type: 
  Country: None (occurrence: None)
  Receive Date: 20110614
  Receipt Date: 20090726
  Transmission Date: 20111010
  Serious: Yes (Other)
  Sender: FDA-Public Use
  Company Number: US-BAYER-200928012NA

PATIENT
  Age: 80 Year
  Sex: Female
  Weight: 80.5 kg

DRUGS (26)
  1. MAGNESIUM SULFATE [Concomitant]
     Dosage: UNK
     Route: 042
     Dates: start: 20051109, end: 20051109
  2. CALCIUM CHLORIDE [Concomitant]
     Dosage: UNK
     Route: 042
     Dates: start: 20051109, end: 20051109
  3. CIPROFLOXACIN [Concomitant]
     Dosage: 400 MG, UNK
     Route: 042
     Dates: start: 20051109, end: 20051109
  4. LASIX [Concomitant]
     Dosage: 20 MG, UNK
     Route: 042
     Dates: start: 20051109, end: 20051109
  5. TRASYLOL [Suspect]
     Indication: CORONARY ARTERY BYPASS
     Dosage: UNK, TEST DOSE
     Route: 042
     Dates: start: 20051109, end: 20051109
  6. ACETYLSALICYLIC ACID SRT [Concomitant]
     Dosage: 1 UNK, QD
     Route: 048
  7. INSULIN [INSULIN] [Concomitant]
     Dosage: 20 UNK UNK, HS
     Route: 058
  8. LIDOCAINE [Concomitant]
     Dosage: 100 UNK, UNK
     Route: 042
     Dates: start: 20051109, end: 20051109
  9. HEPARIN [Concomitant]
     Dosage: 1000 U, Q1HR, DRIP
     Route: 042
     Dates: start: 20051108, end: 20051108
  10. HEPARIN [Concomitant]
     Dosage: UNK
     Route: 042
     Dates: start: 20051109, end: 20051109
  11. MANNITOL [Concomitant]
     Dosage: UNK
     Route: 042
     Dates: start: 20051109, end: 20051109
  12. TRASYLOL [Suspect]
     Dosage: 200 ML, UNK, PRIME
     Route: 042
     Dates: start: 20051109, end: 20051109
  13. INSULIN [INSULIN] [Concomitant]
     Dosage: 30 U, QAM
     Route: 058
  14. VERSED [Concomitant]
     Dosage: UNK
     Route: 042
     Dates: start: 20051109, end: 20051109
  15. PANCURONIUM [Concomitant]
     Dosage: 4 UNK, UNK
     Route: 042
     Dates: start: 20051109, end: 20051109
  16. PROPOFOL [Concomitant]
     Dosage: 50 UNK, UNK
     Route: 042
     Dates: start: 20051109, end: 20051109
  17. PLATELETS [Concomitant]
     Dosage: 1400 ML, UNK
     Route: 042
     Dates: start: 20051109, end: 20051109
  18. FUROSEMIDE [Concomitant]
     Dosage: 20 MG, QD
     Route: 048
  19. LISINOPRIL [Concomitant]
     Dosage: 10 MG, QD
     Route: 048
  20. NITROGLYCERIN [Concomitant]
     Dosage: 10 MCG, Q1HR
     Route: 042
     Dates: start: 20051108, end: 20051108
  21. CEFAZOLIN [Concomitant]
     Dosage: 1 G, UNK
     Route: 042
     Dates: start: 20051109, end: 20051109
  22. RED BLOOD CELLS [Concomitant]
     Dosage: 2 U, UNK
     Route: 042
     Dates: start: 20051109, end: 20051109
  23. METOPROLOL [Concomitant]
     Dosage: 50 MG, BID
     Route: 048
  24. SOLU-MEDROL [Concomitant]
     Dosage: UNK
     Route: 042
     Dates: start: 20051109, end: 20051109
  25. SODIUM BICARBONATE [Concomitant]
     Dosage: 5 G, UNK
     Route: 042
     Dates: start: 20051109, end: 20051109
  26. ANCEF [Concomitant]
     Dosage: 1 G, UNK
     Route: 042
     Dates: start: 20051109, end: 20051109

REACTIONS (8)
  - DEPRESSION [None]
  - RENAL FAILURE [None]
  - ANHEDONIA [None]
  - PAIN [None]
  - INJURY [None]
  - ANXIETY [None]
  - UNEVALUABLE EVENT [None]
  - FEAR [None]
